FAERS Safety Report 7445538-8 (Version None)
Quarter: 2011Q2

REPORT INFORMATION
  Report Type: 
  Country: None (occurrence: None)
  Receive Date: 20110429
  Receipt Date: 20110427
  Transmission Date: 20111010
  Serious: Yes (Other)
  Sender: FDA-Public Use
  Company Number: JP-PFIZER INC-2011048578

PATIENT
  Age: 68 Year
  Sex: Female

DRUGS (9)
  1. TAGAMET DUAL ACTION [Concomitant]
     Indication: GASTRIC ULCER
     Dosage: 200 MG, 2X/DAY
     Route: 048
     Dates: start: 20040812
  2. PREDONINE [Concomitant]
     Indication: SJOGREN'S SYNDROME
     Dosage: 5 MG, 1X/DAY
     Route: 048
     Dates: start: 20041202
  3. MEVALOTIN [Concomitant]
     Indication: HYPERLIPIDAEMIA
     Dosage: 10 MG, 2X/DAY
     Route: 048
     Dates: start: 20050704
  4. LYRICA [Suspect]
     Indication: NEURALGIA
     Dosage: 75 MG, 2X/DAY
     Route: 048
     Dates: start: 20110202, end: 20110305
  5. GLAKAY [Concomitant]
     Indication: OSTEOPOROSIS
     Dosage: 15 MG, 3X/DAY
     Route: 048
     Dates: start: 20041202
  6. TORASEMIDE [Concomitant]
     Indication: CARDIAC FAILURE
     Dosage: 1 MG, 1X/DAY
     Route: 048
     Dates: start: 20100901
  7. VOLTAREN [Concomitant]
     Indication: PAIN
     Dosage: 25 MG, AS NEEDED
     Route: 048
     Dates: start: 20040812
  8. RIVOTRIL [Concomitant]
     Indication: PAIN
     Dosage: 0.5 MG, 3X/DAY
     Route: 048
     Dates: start: 20041202
  9. BREDININ [Concomitant]
     Indication: SJOGREN'S SYNDROME
     Dosage: 50 MG, 2X/DAY
     Route: 048
     Dates: start: 20050404

REACTIONS (3)
  - SOMNOLENCE [None]
  - PALPITATIONS [None]
  - OEDEMA [None]
